FAERS Safety Report 25981061 (Version 1)
Quarter: 2025Q4

REPORT INFORMATION
  Report Type: Spontaneous
  Country: US (occurrence: US)
  Receive Date: 20251030
  Receipt Date: 20251030
  Transmission Date: 20260117
  Serious: No
  Sender: ELI LILLY AND COMPANY
  Company Number: US-ELI_LILLY_AND_COMPANY-US202510012365

PATIENT
  Age: 54 Year
  Sex: Female

DRUGS (20)
  1. ZEPBOUND [Suspect]
     Active Substance: TIRZEPATIDE
     Indication: Impaired insulin secretion
     Dosage: 2.5 MG, WEEKLY (1/W)
     Route: 065
     Dates: start: 20250731
  2. ZEPBOUND [Suspect]
     Active Substance: TIRZEPATIDE
     Indication: Impaired insulin secretion
     Dosage: 2.5 MG, WEEKLY (1/W)
     Route: 065
     Dates: start: 20250731
  3. ZEPBOUND [Suspect]
     Active Substance: TIRZEPATIDE
     Indication: Impaired insulin secretion
     Dosage: 2.5 MG, WEEKLY (1/W)
     Route: 065
     Dates: start: 20250731
  4. ZEPBOUND [Suspect]
     Active Substance: TIRZEPATIDE
     Indication: Impaired insulin secretion
     Dosage: 2.5 MG, WEEKLY (1/W)
     Route: 065
     Dates: start: 20250731
  5. ZEPBOUND [Suspect]
     Active Substance: TIRZEPATIDE
     Indication: Impaired insulin secretion
     Dosage: 5 MG, WEEKLY (1/W)
     Route: 065
     Dates: start: 20250828, end: 20250918
  6. ZEPBOUND [Suspect]
     Active Substance: TIRZEPATIDE
     Indication: Impaired insulin secretion
     Dosage: 5 MG, WEEKLY (1/W)
     Route: 065
     Dates: start: 20250828, end: 20250918
  7. ZEPBOUND [Suspect]
     Active Substance: TIRZEPATIDE
     Indication: Impaired insulin secretion
     Dosage: 5 MG, WEEKLY (1/W)
     Route: 065
     Dates: start: 20250828, end: 20250918
  8. ZEPBOUND [Suspect]
     Active Substance: TIRZEPATIDE
     Indication: Impaired insulin secretion
     Dosage: 5 MG, WEEKLY (1/W)
     Route: 065
     Dates: start: 20250828, end: 20250918
  9. ZEPBOUND [Suspect]
     Active Substance: TIRZEPATIDE
     Indication: Impaired insulin secretion
     Dosage: 5 MG, WEEKLY (1/W)
     Route: 065
     Dates: start: 20250828, end: 20250918
  10. ZEPBOUND [Suspect]
     Active Substance: TIRZEPATIDE
     Indication: Impaired insulin secretion
     Dosage: 5 MG, WEEKLY (1/W)
     Route: 065
     Dates: start: 20250828, end: 20250918
  11. ZEPBOUND [Suspect]
     Active Substance: TIRZEPATIDE
     Dosage: 5 MG, WEEKLY (1/W)
     Route: 065
     Dates: start: 20250925
  12. ZEPBOUND [Suspect]
     Active Substance: TIRZEPATIDE
     Dosage: 5 MG, WEEKLY (1/W)
     Route: 065
     Dates: start: 20250925
  13. ZEPBOUND [Suspect]
     Active Substance: TIRZEPATIDE
     Dosage: 5 MG, WEEKLY (1/W)
     Route: 065
     Dates: start: 20250925
  14. ZEPBOUND [Suspect]
     Active Substance: TIRZEPATIDE
     Dosage: 5 MG, WEEKLY (1/W)
     Route: 065
     Dates: start: 20250925
  15. ZEPBOUND [Suspect]
     Active Substance: TIRZEPATIDE
     Dosage: 5 MG, WEEKLY (1/W)
     Route: 065
     Dates: start: 20250925
  16. ZEPBOUND [Suspect]
     Active Substance: TIRZEPATIDE
     Dosage: 5 MG, WEEKLY (1/W)
     Route: 065
     Dates: start: 20250925
  17. METFORMIN [Concomitant]
     Active Substance: METFORMIN HYDROCHLORIDE
     Indication: Product used for unknown indication
     Dosage: 4 DOSAGE FORM, DAILY
     Route: 065
  18. METFORMIN [Concomitant]
     Active Substance: METFORMIN HYDROCHLORIDE
     Dosage: 2 DOSAGE FORM, DAILY
     Route: 065
     Dates: start: 202508
  19. METFORMIN [Concomitant]
     Active Substance: METFORMIN HYDROCHLORIDE
     Dosage: 4 DOSAGE FORM, DAILY
     Route: 065
  20. ASPIRIN [Concomitant]
     Active Substance: ASPIRIN
     Indication: Essential thrombocythaemia

REACTIONS (8)
  - Incorrect dose administered [Unknown]
  - Incorrect dose administered [Unknown]
  - Feeling abnormal [Not Recovered/Not Resolved]
  - Off label use [Unknown]
  - Blood glucose decreased [Unknown]
  - Injection site reaction [Unknown]
  - Injection site bruising [Unknown]
  - Nausea [Unknown]

NARRATIVE: CASE EVENT DATE: 20250731
